FAERS Safety Report 8346310-7 (Version None)
Quarter: 2012Q2

REPORT INFORMATION
  Report Type: 
  Country: None (occurrence: None)
  Receive Date: 20120509
  Receipt Date: 20120424
  Transmission Date: 20120825
  Serious: No
  Sender: FDA-Public Use
  Company Number: US-COVIDIEN/TYCO HEALTHCARE/MALLINCKRODT-T201201557

PATIENT
  Age: 58 Year
  Sex: Female

DRUGS (2)
  1. PENNSAID [Suspect]
     Indication: BURSITIS
     Dosage: UNK
     Route: 061
     Dates: start: 20120419, end: 20120420
  2. PENNSAID [Suspect]
     Indication: OSTEOARTHRITIS

REACTIONS (1)
  - APPLICATION SITE HAEMATOMA [None]
